FAERS Safety Report 14561788 (Version 4)
Quarter: 2019Q2

REPORT INFORMATION
  Report Type: Spontaneous
  Country: US (occurrence: US)
  Receive Date: 20180222
  Receipt Date: 20190501
  Transmission Date: 20190711
  Serious: No
  Sender: FDA-Public Use
  Company Number: US-PFIZER INC-2018073757

PATIENT
  Age: 81 Year
  Sex: Female
  Weight: 58 kg

DRUGS (4)
  1. LYRICA [Suspect]
     Active Substance: PREGABALIN
     Indication: HYPOAESTHESIA
     Dosage: UNK,  (TAKE IT AT NIGHT/TAKE IT AT 2PM/ TAKE IT AT 8AM)
     Dates: start: 20180130, end: 20180218
  2. PREDNISONE. [Concomitant]
     Active Substance: PREDNISONE
     Indication: POLYMYALGIA RHEUMATICA
     Dosage: 5 MG, UNK
     Dates: start: 201110
  3. PREDNISONE. [Concomitant]
     Active Substance: PREDNISONE
     Dosage: UNK
     Dates: start: 20110820
  4. LYRICA [Suspect]
     Active Substance: PREGABALIN
     Indication: PERONEAL NERVE PALSY
     Dosage: 25 MG, UNK
     Route: 048

REACTIONS (3)
  - Somnolence [Recovering/Resolving]
  - Pruritus [Not Recovered/Not Resolved]
  - Facial pain [Unknown]

NARRATIVE: CASE EVENT DATE: 20180130
